FAERS Safety Report 21289913 (Version 1)
Quarter: 2022Q3

REPORT INFORMATION
  Report Type: Spontaneous
  Country: US (occurrence: US)
  Receive Date: 20220902
  Receipt Date: 20220902
  Transmission Date: 20221026
  Serious: No
  Sender: FDA-Public Use
  Company Number: US-MYLANLABS-2022M1090273

PATIENT
  Age: 81 Year
  Sex: Female
  Weight: 61.224 kg

DRUGS (2)
  1. ESTRADIOL TRANSDERMAL SYSTEM [Suspect]
     Active Substance: ESTRADIOL
     Indication: Reproductive tract disorder
     Dosage: 0.05 MILLIGRAM, QD (TWICE-WEEKLY)
     Route: 062
  2. ESTRADIOL TRANSDERMAL SYSTEM [Suspect]
     Active Substance: ESTRADIOL
     Dosage: 0.05 MILLIGRAM, QD (TWICE-WEEKLY)
     Route: 062

REACTIONS (3)
  - Application site rash [Unknown]
  - Application site pruritus [Unknown]
  - Application site irritation [Unknown]

NARRATIVE: CASE EVENT DATE: 20220809
